FAERS Safety Report 23761794 (Version 1)
Quarter: 2024Q2

REPORT INFORMATION
  Report Type: Spontaneous
  Country: US (occurrence: US)
  Receive Date: 20240419
  Receipt Date: 20240419
  Transmission Date: 20240716
  Serious: No
  Sender: FDA-Public Use
  Company Number: US-JNJFOC-20151217215

PATIENT
  Age: 28 Year
  Sex: Female
  Weight: 83.1 kg

DRUGS (10)
  1. STELARA [Suspect]
     Active Substance: USTEKINUMAB
     Indication: Psoriasis
     Route: 058
     Dates: start: 20080107, end: 20161207
  2. TYLENOL [Concomitant]
     Active Substance: ACETAMINOPHEN
     Indication: Headache
     Dosage: 1 PILL 1.5 PER WEEK.
     Route: 048
     Dates: start: 20150710, end: 20151230
  3. TYLENOL [Concomitant]
     Active Substance: ACETAMINOPHEN
     Route: 048
     Dates: start: 20151231, end: 20160311
  4. TYLENOL [Concomitant]
     Active Substance: ACETAMINOPHEN
     Route: 048
     Dates: start: 20160312, end: 20160519
  5. CLOBETASOL PROPIONATE [Concomitant]
     Active Substance: CLOBETASOL PROPIONATE
     Indication: Psoriasis
     Dosage: 1 PUFF 3.5 PER MONTH.
     Route: 061
     Dates: start: 20150710
  6. FEMARA [Concomitant]
     Active Substance: LETROZOLE
     Indication: Pregnancy
     Dosage: 1 PILL PER 1 DAY.
     Route: 048
     Dates: start: 20151010, end: 20151014
  7. TUMS [Concomitant]
     Active Substance: CALCIUM CARBONATE
     Dosage: 2 PILL PER 2 TOTAL.
     Route: 048
     Dates: start: 20151007, end: 20151217
  8. OMEPRAZOLE [Concomitant]
     Active Substance: OMEPRAZOLE
     Indication: Dyspepsia
     Dosage: 1 PILL PER 1 DAY.
     Route: 048
     Dates: start: 20151125
  9. BOOSTRIX [Concomitant]
     Active Substance: TETANUS TOXOID, REDUCED DIPHTHERIA TOXOID AND ACELLULAR PERTUSSIS VACCINE, ADSORBED ANTIGENS
     Dosage: 1 PILL PER 1 DAY.
     Route: 030
     Dates: start: 20160505, end: 20160505
  10. VITAMIN D [Concomitant]
     Active Substance: VITAMIN D NOS
     Indication: Product used for unknown indication
     Dosage: 1 PILL PER 1 DAY.
     Route: 048
     Dates: start: 20160226, end: 20160615

REACTIONS (1)
  - Exposure during pregnancy [Recovered/Resolved]

NARRATIVE: CASE EVENT DATE: 20151007
